FAERS Safety Report 12956317 (Version 1)
Quarter: 2016Q4

REPORT INFORMATION
  Report Type: Spontaneous
  Country: IL (occurrence: IL)
  Receive Date: 20161118
  Receipt Date: 20161118
  Transmission Date: 20170207
  Serious: Yes (Death, Hospitalization)
  Sender: FDA-Public Use
  Company Number: IL-UNITED THERAPEUTICS-UNT-2016-017572

PATIENT
  Sex: Female

DRUGS (2)
  1. TYVASO [Suspect]
     Active Substance: TREPROSTINIL
     Indication: PULMONARY ARTERIAL HYPERTENSION
     Dosage: 54 ?G, QID
     Dates: start: 2016
  2. TYVASO [Suspect]
     Active Substance: TREPROSTINIL
     Indication: SCLERODERMA

REACTIONS (2)
  - Cardiac failure [Fatal]
  - Condition aggravated [Unknown]

NARRATIVE: CASE EVENT DATE: 201611
